FAERS Safety Report 10530543 (Version 1)
Quarter: 2014Q4

REPORT INFORMATION
  Report Type: Other
  Country: GB (occurrence: GB)
  Receive Date: 20141021
  Receipt Date: 20141021
  Transmission Date: 20150528
  Serious: Yes (Life-Threatening, Hospitalization)
  Sender: FDA-Public Use
  Company Number: GB-MYLANLABS-2014M1006753

PATIENT

DRUGS (10)
  1. BISOPROLOL [Concomitant]
     Active Substance: BISOPROLOL
     Dosage: EVERY MORNING
  2. WARFARIN [Suspect]
     Active Substance: WARFARIN
     Indication: ATRIAL FIBRILLATION
     Dosage: APB
     Route: 048
  3. FUROSEMIDE. [Concomitant]
     Active Substance: FUROSEMIDE
     Dosage: EVERY MORNING
  4. SIMVASTATIN. [Concomitant]
     Active Substance: SIMVASTATIN
     Dosage: 5 MG, QD (EVERY MORNING)
  5. OMEPRAZOLE. [Concomitant]
     Active Substance: OMEPRAZOLE
     Dosage: 40 MG, QD (IN THE MORNING)
  6. OMEPRAZOLE. [Concomitant]
     Active Substance: OMEPRAZOLE
     Dosage: IN THE MORNING
  7. DIGOXIN. [Concomitant]
     Active Substance: DIGOXIN
     Dosage: 62.5 ?G, QD
  8. FLUCLOXACILLIN [Concomitant]
     Active Substance: FLUCLOXACILLIN
     Dosage: 500 MG, QID
  9. PERINDOPRIL [Concomitant]
     Active Substance: PERINDOPRIL
     Dosage: AT NIGHT
  10. LACTULOSE. [Concomitant]
     Active Substance: LACTULOSE
     Dosage: 10 ML, BID

REACTIONS (4)
  - Haematemesis [Unknown]
  - Haemorrhage [Recovering/Resolving]
  - Gastric ulcer [Unknown]
  - International normalised ratio increased [Unknown]
